FAERS Safety Report 5031193-3 (Version None)
Quarter: 2006Q2

REPORT INFORMATION
  Report Type: 
  Country: None (occurrence: None)
  Receive Date: 20060615
  Receipt Date: 20060605
  Transmission Date: 20061013
  Serious: Yes (Other)
  Sender: FDA-Public Use
  Company Number: US017060

PATIENT
  Age: 65 Year
  Sex: Male

DRUGS (3)
  1. ALERTEC [Suspect]
     Indication: NARCOLEPSY
     Dosage: 100 MG QD ORAL
     Route: 048
     Dates: start: 20050105, end: 20060202
  2. ALERTEC [Suspect]
     Indication: NARCOLEPSY
     Dosage: 50 MG QD ORAL
     Route: 048
     Dates: start: 20060203, end: 20060224
  3. FLOMAX [Concomitant]

REACTIONS (2)
  - BLOOD PRESSURE INCREASED [None]
  - CEREBROVASCULAR ACCIDENT [None]
